FAERS Safety Report 19980403 (Version 1)
Quarter: 2021Q4

REPORT INFORMATION
  Report Type: Report from Study
  Country: US (occurrence: US)
  Receive Date: 20211021
  Receipt Date: 20211021
  Transmission Date: 20220303
  Serious: Yes (Other)
  Sender: FDA-Public Use
  Company Number: US-GILEAD-2021-0553350

PATIENT
  Age: 79 Year
  Sex: Male
  Weight: 75.3 kg

DRUGS (1)
  1. SACITUZUMAB GOVITECAN [Suspect]
     Active Substance: SACITUZUMAB GOVITECAN
     Indication: Transitional cell carcinoma metastatic
     Dosage: 10 MG/KG ? 75.3 KG
     Route: 042
     Dates: start: 202106, end: 20210907

REACTIONS (1)
  - Disease progression [Unknown]
